FAERS Safety Report 8826133 (Version 2)
Quarter: 2012Q4

REPORT INFORMATION
  Report Type: 
  Country: US (occurrence: US)
  Receive Date: 20121008
  Receipt Date: 20121022
  Transmission Date: 20130627
  Serious: Yes (Other)
  Sender: FDA-Public Use
  Company Number: US-AMGEN-USASP2012062664

PATIENT
  Age: 64 Year
  Sex: Female
  Weight: 58.96 kg

DRUGS (5)
  1. ENBREL [Suspect]
     Indication: RHEUMATOID ARTHRITIS
     Dosage: 50 mg, qwk
     Route: 058
     Dates: start: 20120829, end: 20120929
  2. ARAVA [Concomitant]
     Indication: RHEUMATOID ARTHRITIS
     Dosage: 20 mg, qd
     Route: 048
     Dates: start: 20120516
  3. SYNTHROID [Concomitant]
     Indication: HYPOTHYROIDISM
     Dosage: 137 mg, qd
     Route: 048
     Dates: start: 2001
  4. CLARITIN                           /00413701/ [Concomitant]
     Indication: HYPERSENSITIVITY
     Dosage: 10 mg, qd
     Route: 048
  5. VITAMIN D /00107901/ [Concomitant]
     Indication: VITAMIN D DEFICIENCY
     Dosage: 1000 unit, qd
     Route: 048

REACTIONS (2)
  - Rash pruritic [Recovered/Resolved]
  - Rash erythematous [Not Recovered/Not Resolved]
